FAERS Safety Report 19295013 (Version 2)
Quarter: 2024Q4

REPORT INFORMATION
  Report Type: Spontaneous
  Country: AT (occurrence: AT)
  Receive Date: 20210524
  Receipt Date: 20241218
  Transmission Date: 20250115
  Serious: Yes (Hospitalization)
  Sender: SAMSUNG BIOEPIS
  Company Number: None

PATIENT
  Age: 40 Year
  Sex: Female
  Weight: 60 kg

DRUGS (35)
  1. TRASTUZUMAB [Suspect]
     Active Substance: TRASTUZUMAB
     Indication: HER2 positive breast cancer
     Dosage: MOST RECENT DOSE ON 27-DEC-2019;
     Route: 058
     Dates: start: 20180503, end: 20190502
  2. ADO-TRASTUZUMAB EMTANSINE [Suspect]
     Active Substance: ADO-TRASTUZUMAB EMTANSINE
     Indication: HER2 positive breast cancer
     Route: 042
     Dates: start: 20170821, end: 20201120
  3. ADO-TRASTUZUMAB EMTANSINE [Suspect]
     Active Substance: ADO-TRASTUZUMAB EMTANSINE
     Dosage: MOST RECENT DOSE PRIOR TO THE EVENT: 21/AUG/2017?MOST RECENT DOSE PRIOR TO THE EVENT: 22/MAY/2017
     Route: 042
     Dates: start: 20161114, end: 20170424
  4. ADO-TRASTUZUMAB EMTANSINE [Suspect]
     Active Substance: ADO-TRASTUZUMAB EMTANSINE
     Dosage: UNKNOWN
     Route: 042
     Dates: start: 20170522, end: 20170522
  5. ADO-TRASTUZUMAB EMTANSINE [Suspect]
     Active Substance: ADO-TRASTUZUMAB EMTANSINE
     Dosage: MOST RECENT DOSE ON 27/DEC/2019;
     Dates: start: 20180503, end: 20190502
  6. ADO-TRASTUZUMAB EMTANSINE [Suspect]
     Active Substance: ADO-TRASTUZUMAB EMTANSINE
     Dosage: 600 MILLIGRAM, Q3WEEKS;
     Route: 042
     Dates: start: 20180305
  7. DENOSUMAB [Suspect]
     Active Substance: DENOSUMAB
     Indication: HER2 positive breast cancer
     Dosage: START DATE: 19-MAR-2019;
     Route: 058
     Dates: end: 201904
  8. DENOSUMAB [Suspect]
     Active Substance: DENOSUMAB
     Dosage: UNKNOWN
     Route: 058
     Dates: start: 20181129
  9. DENOSUMAB [Suspect]
     Active Substance: DENOSUMAB
     Dosage: MOST RECENT DOSE OF DENOSUMAB 19/MAR/2019, 29/NOV/2018;
     Route: 058
     Dates: start: 201611, end: 20161129
  10. PERTUZUMAB [Suspect]
     Active Substance: PERTUZUMAB
     Indication: HER2 positive breast cancer
     Dosage: START DATE: 22-NOV-2018; MOST RECENT DOSE PRIOR TO THE EVENT: 22-NOV-2018, INFUSION, SOLUTION;
     Route: 042
     Dates: end: 20181122
  11. PERTUZUMAB [Suspect]
     Active Substance: PERTUZUMAB
     Dosage: MOST RECENT DOSE ON 27-DEC-2019, INFUSION, SOLUTION
     Route: 042
     Dates: start: 201811
  12. PERTUZUMAB [Suspect]
     Active Substance: PERTUZUMAB
     Dosage: START DATE: 09-MAY-2019; MOST RECENT DOSE ON 27/DEC/2019;
     Route: 058
     Dates: end: 20191227
  13. LETROZOLE [Suspect]
     Active Substance: LETROZOLE
     Indication: HER2 positive breast cancer
     Route: 048
     Dates: start: 20180426, end: 20200225
  14. LEUPROLIDE ACETATE [Suspect]
     Active Substance: LEUPROLIDE ACETATE
     Indication: HER2 positive breast cancer
     Route: 058
     Dates: start: 201804
  15. HERCEPTIN [Suspect]
     Active Substance: TRASTUZUMAB
     Indication: HER2 positive breast cancer
     Dosage: START DATE: 09-MAY-2019;
     Route: 058
     Dates: end: 20191227
  16. PERJETA [Suspect]
     Active Substance: PERTUZUMAB
     Indication: HER2 positive breast cancer
     Dosage: START DATE: 13-DEC-2018;
     Route: 058
     Dates: end: 20190502
  17. PERJETA [Suspect]
     Active Substance: PERTUZUMAB
     Route: 042
     Dates: start: 201811, end: 201811
  18. ACETAMINOPHEN [Concomitant]
     Active Substance: ACETAMINOPHEN
     Indication: Metastases to central nervous system
     Dosage: UNKNOWN
     Dates: start: 20170609, end: 20200417
  19. DEXAMETHASONE [Concomitant]
     Active Substance: DEXAMETHASONE
     Indication: Product used for unknown indication
     Dates: start: 20200229, end: 20200302
  20. DEXAMETHASONE [Concomitant]
     Active Substance: DEXAMETHASONE
     Dates: start: 20170530, end: 20170530
  21. DEXAMETHASONE [Concomitant]
     Active Substance: DEXAMETHASONE
     Dates: start: 20200303, end: 20200309
  22. DEXAMETHASONE [Concomitant]
     Active Substance: DEXAMETHASONE
     Dosage: UNK;
     Dates: start: 20170330, end: 20200417
  23. MIRANAX [Concomitant]
     Indication: Product used for unknown indication
     Dates: start: 20161115, end: 20200417
  24. ZOFRAN [Concomitant]
     Active Substance: ONDANSETRON HYDROCHLORIDE
     Indication: Product used for unknown indication
     Dosage: UNKNOWN
     Dates: start: 20161115, end: 20200417
  25. ZOFRAN [Concomitant]
     Active Substance: ONDANSETRON HYDROCHLORIDE
     Dates: start: 20200228, end: 20200228
  26. MEFENAMIC ACID [Concomitant]
     Active Substance: MEFENAMIC ACID
     Indication: Dental fistula
     Dates: start: 20170315, end: 20200417
  27. MEFENAMIC ACID [Concomitant]
     Active Substance: MEFENAMIC ACID
     Dates: start: 20181113, end: 20181120
  28. EMEND [Concomitant]
     Active Substance: APREPITANT
     Indication: Product used for unknown indication
     Dosage: ONGOING: CHECKED
     Dates: start: 20161115, end: 20200417
  29. MORPHINE [Concomitant]
     Active Substance: MORPHINE
     Indication: Product used for unknown indication
     Dates: start: 20170530, end: 20170530
  30. MORPHINE [Concomitant]
     Active Substance: MORPHINE
     Dates: start: 20200225, end: 20200417
  31. POLYETHYLENE GLYCOL 3350\POTASSIUM CHLORIDE\SODIUM BICARBONATE\SODIUM [Concomitant]
     Active Substance: POLYETHYLENE GLYCOL 3350\POTASSIUM CHLORIDE\SODIUM BICARBONATE\SODIUM CHLORIDE
     Indication: Product used for unknown indication
  32. LYRICA [Concomitant]
     Active Substance: PREGABALIN
     Indication: Product used for unknown indication
     Dates: start: 20200225, end: 20200417
  33. ZOLPIDEM [Concomitant]
     Active Substance: ZOLPIDEM TARTRATE
     Indication: Product used for unknown indication
     Dates: start: 20200228, end: 20200417
  34. FRAGMIN [Concomitant]
     Active Substance: DALTEPARIN SODIUM
     Indication: Product used for unknown indication
     Dosage: UNK;
     Dates: start: 20200228, end: 20200311
  35. ACETAMINOPHEN [Concomitant]
     Active Substance: ACETAMINOPHEN
     Indication: Product used for unknown indication
     Dates: start: 20200228, end: 20200228

REACTIONS (6)
  - Vision blurred [Recovered/Resolved]
  - Chills [Recovered/Resolved]
  - Night sweats [Recovered/Resolved]
  - Dental fistula [Recovered/Resolved]
  - Spinal pain [Recovered/Resolved]
  - Nasopharyngitis [Recovered/Resolved]

NARRATIVE: CASE EVENT DATE: 20181112
